FAERS Safety Report 8556168-9 (Version None)
Quarter: 2012Q3

REPORT INFORMATION
  Report Type: 
  Country: None (occurrence: None)
  Receive Date: 20120801
  Receipt Date: 20120720
  Transmission Date: 20120928
  Serious: Yes (Hospitalization)
  Sender: FDA-Public Use
  Company Number: JP-ACCORD-008452

PATIENT
  Sex: Female
  Weight: 50 kg

DRUGS (5)
  1. FLUOROURACIL [Suspect]
     Indication: COLON CANCER STAGE IV
  2. OXALIPLATIN [Suspect]
     Indication: COLON CANCER STAGE IV
  3. LEUCOVORIN CALCIUM [Concomitant]
     Indication: COLON CANCER STAGE IV
  4. BEVACIZUMAB [Suspect]
     Indication: COLON CANCER STAGE IV
  5. IRINOTECAN HCL [Suspect]
     Indication: COLON CANCER STAGE IV

REACTIONS (2)
  - RESPIRATORY FAILURE [None]
  - PYREXIA [None]
